FAERS Safety Report 8851815 (Version 1)
Quarter: 2012Q4

REPORT INFORMATION
  Report Type: 
  Country: US (occurrence: US)
  Receive Date: 20121022
  Receipt Date: 20121022
  Transmission Date: 20130627
  Serious: No
  Sender: FDA-Public Use
  Company Number: US-JNJFOC-20121006051

PATIENT
  Sex: Male
  Weight: 111.13 kg

DRUGS (2)
  1. SANDOZ FENTANYL TRANSDERMAL SYSTEM [Suspect]
     Indication: COMPLEX REGIONAL PAIN SYNDROME
     Route: 062
     Dates: start: 201110
  2. UNKNOWN MEDICATION [Concomitant]
     Route: 065

REACTIONS (3)
  - Product packaging quantity issue [Unknown]
  - Drug prescribing error [Unknown]
  - Drug administration error [Unknown]
